FAERS Safety Report 6815291-7 (Version None)
Quarter: 2010Q3

REPORT INFORMATION
  Report Type: 
  Country: None (occurrence: None)
  Receive Date: 20100702
  Receipt Date: 20100622
  Transmission Date: 20110219
  Serious: Yes (Other)
  Sender: FDA-Public Use
  Company Number: BR-MEDIMMUNE-MEDI-0011110

PATIENT
  Sex: Female
  Weight: 8.75 kg

DRUGS (2)
  1. SYNAGIS [Suspect]
     Route: 030
     Dates: start: 20090418, end: 20090418
  2. CAPTOPRIL [Concomitant]
     Route: 048
     Dates: start: 20090323, end: 20090601

REACTIONS (4)
  - ATRIAL SEPTAL DEFECT [None]
  - HEART RATE INCREASED [None]
  - PULMONARY VALVE STENOSIS [None]
  - VENTRICULAR SEPTAL DEFECT [None]
